FAERS Safety Report 7039293-3 (Version None)
Quarter: 2010Q4

REPORT INFORMATION
  Report Type: 
  Country: None (occurrence: None)
  Receive Date: 20101012
  Receipt Date: 20101005
  Transmission Date: 20110411
  Serious: Yes (Hospitalization)
  Sender: FDA-Public Use
  Company Number: FR-BAXTER-2010BH025328

PATIENT
  Age: 55 Year
  Sex: Female

DRUGS (6)
  1. CYCLOPHOSPHAMIDE [Suspect]
     Indication: BREAST CANCER STAGE II
     Route: 042
     Dates: start: 20091218, end: 20091218
  2. FLUOROURACIL [Suspect]
     Indication: BREAST CANCER STAGE II
     Route: 042
     Dates: start: 20091218, end: 20091218
  3. EPIRUBICIN HYDROCHLORIDE [Suspect]
     Indication: BREAST CANCER STAGE II
     Route: 042
     Dates: start: 20091218, end: 20091218
  4. DEXRAZOXANE [Suspect]
     Indication: BREAST CANCER STAGE II
     Route: 042
     Dates: start: 20091218, end: 20091218
  5. KARDEGIC                                /FRA/ [Concomitant]
     Indication: PRODUCT USED FOR UNKNOWN INDICATION
     Route: 065
  6. VOGALENE [Concomitant]
     Indication: PRODUCT USED FOR UNKNOWN INDICATION
     Route: 065

REACTIONS (6)
  - BLISTER [None]
  - DRUG HYPERSENSITIVITY [None]
  - ERYTHEMA [None]
  - PRURITUS [None]
  - RASH [None]
  - URTICARIA [None]
